FAERS Safety Report 14279351 (Version 2)
Quarter: 2017Q4

REPORT INFORMATION
  Report Type: Spontaneous
  Country: DE (occurrence: DE)
  Receive Date: 20171213
  Receipt Date: 20171229
  Transmission Date: 20180321
  Serious: Yes (Other)
  Sender: FDA-Public Use
  Company Number: DE-TEVA-2017-DE-829538

PATIENT
  Age: 54 Year
  Sex: Female

DRUGS (3)
  1. OMEPRAZOLE. [Suspect]
     Active Substance: OMEPRAZOLE
     Indication: GASTROOESOPHAGEAL REFLUX DISEASE
     Dates: start: 201402
  2. PANTOPRAZOLE [Suspect]
     Active Substance: PANTOPRAZOLE
  3. AZITHROMYCIN ANHYDROUS. [Concomitant]
     Active Substance: AZITHROMYCIN ANHYDROUS
     Indication: BRONCHITIS
     Dates: start: 201402

REACTIONS (6)
  - Hypotension [Unknown]
  - Diarrhoea [Unknown]
  - Flushing [Unknown]
  - Therapeutic product cross-reactivity [Unknown]
  - Abdominal pain [Unknown]
  - Vomiting [Unknown]
